FAERS Safety Report 5647989-0 (Version None)
Quarter: 2008Q1

REPORT INFORMATION
  Report Type: 
  Country: None (occurrence: None)
  Receive Date: 20080131
  Receipt Date: 20071127
  Transmission Date: 20080703
  Serious: No
  Sender: FDA-Public Use
  Company Number: US200711006316

PATIENT
  Age: 60 Year
  Sex: Female
  Weight: 68 kg

DRUGS (5)
  1. BYETTA [Suspect]
     Indication: TYPE 2 DIABETES MELLITUS
     Dosage: 5 UG, 2/D, SUBCUTANEOUS ; 10 UG, 2/D,SUBCUTANEOUS
     Route: 058
     Dates: start: 20070501, end: 20070701
  2. BYETTA [Suspect]
     Indication: TYPE 2 DIABETES MELLITUS
     Dosage: 5 UG, 2/D, SUBCUTANEOUS ; 10 UG, 2/D,SUBCUTANEOUS
     Route: 058
     Dates: start: 20070701
  3. GLYBURIDE [Concomitant]
  4. VYTORIN [Concomitant]
  5. METFORMIN HCL [Concomitant]

REACTIONS (3)
  - MUSCLE SPASMS [None]
  - SUBCUTANEOUS NODULE [None]
  - WEIGHT DECREASED [None]
